FAERS Safety Report 9016499 (Version 1)
Quarter: 2013Q1

REPORT INFORMATION
  Report Type: Spontaneous
  Country: US (occurrence: US)
  Receive Date: 20130116
  Receipt Date: 20130116
  Transmission Date: 20140127
  Serious: Yes (Other)
  Sender: FDA-Public Use
  Company Number: US-US-EMD SERONO, INC.-7186255

PATIENT
  Sex: Male

DRUGS (1)
  1. SEROSTIM [(SOMATROPIN (RDNA ORIGIN) FOR INJECTION)] [Suspect]
     Indication: CACHEXIA
     Route: 058
     Dates: start: 201210

REACTIONS (3)
  - Mental status changes [Not Recovered/Not Resolved]
  - Coordination abnormal [Not Recovered/Not Resolved]
  - Speech disorder [Not Recovered/Not Resolved]
